FAERS Safety Report 6175627-X (Version None)
Quarter: 2009Q2

REPORT INFORMATION
  Report Type: 
  Country: None (occurrence: None)
  Receive Date: 20090501
  Receipt Date: 20090304
  Transmission Date: 20091009
  Serious: No
  Sender: FDA-Public Use
  Company Number: US-BAYER-200915222NA

PATIENT
  Age: 43 Year
  Sex: Female
  Weight: 100 kg

DRUGS (1)
  1. MIRENA [Suspect]
     Indication: CONTRACEPTION
     Route: 015
     Dates: start: 20020101

REACTIONS (1)
  - NO ADVERSE EVENT [None]
